FAERS Safety Report 19432755 (Version 1)
Quarter: 2021Q2

REPORT INFORMATION
  Report Type: Spontaneous
  Country: US (occurrence: US)
  Receive Date: 20210617
  Receipt Date: 20210617
  Transmission Date: 20210717
  Serious: Yes (Other)
  Sender: FDA-Public Use
  Company Number: US-BRAINTREE LABORATORIES, INC.-2021BTE00450

PATIENT
  Sex: Female
  Weight: 81.63 kg

DRUGS (14)
  1. SUPREP BOWEL PREP [Suspect]
     Active Substance: MAGNESIUM SULFATE\POTASSIUM SULFATE\SODIUM SULFATE
     Indication: COLONOSCOPY
     Dosage: 2 X 6 OZ. BOTTLE, 1X
     Dates: start: 201810, end: 201810
  2. OMEPRAZOLE. [Suspect]
     Active Substance: OMEPRAZOLE
     Indication: GASTROOESOPHAGEAL REFLUX DISEASE
     Dosage: UNK
     Dates: start: 2021, end: 2021
  3. MAGNESIUM [Concomitant]
     Active Substance: MAGNESIUM
     Dosage: 200 MG, 1X/DAY
  4. VITAMIN B6 [Concomitant]
     Active Substance: PYRIDOXINE HYDROCHLORIDE
     Dosage: 100 MG, 1X/DAY
  5. VITAMIN D3 [Concomitant]
     Active Substance: CHOLECALCIFEROL
  6. COVID VACCINE [Concomitant]
     Dosage: UNK, TWICE
  7. LAMOTRIGINE (MFG: TEVA) [Concomitant]
  8. LAMOTRIGINE (MFG: ^UCHEM^) [Suspect]
     Active Substance: LAMOTRIGINE
     Indication: SEIZURE
  9. LAMOTRIGINE (MFG: AUROBINDO) [Suspect]
     Active Substance: LAMOTRIGINE
     Indication: SEIZURE
  10. UNSPECIFIED ANTIBIOTICS [Suspect]
     Active Substance: UNSPECIFIED INGREDIENT
     Indication: TOOTH DISORDER
  11. DOCUSATE SODIUM. [Concomitant]
     Active Substance: DOCUSATE SODIUM
     Dosage: 200 MG, 1X/DAY NIGHTLY
  12. LAMICTAL [Suspect]
     Active Substance: LAMOTRIGINE
     Indication: SEIZURE
     Dosage: 125 MG, 1X/DAY MORNING
  13. LAMICTAL [Suspect]
     Active Substance: LAMOTRIGINE
     Dosage: 100 MG, 1X/DAY AT NIGHT
  14. LEVETIRACETAM (MFG: LUPIN) [Concomitant]
     Dosage: 1000 MG, 1X/DAY

REACTIONS (14)
  - Constipation [Not Recovered/Not Resolved]
  - Rectal haemorrhage [Not Recovered/Not Resolved]
  - Clostridium difficile infection [Unknown]
  - Eosinophilic oesophagitis [Unknown]
  - Tooth disorder [Unknown]
  - Dyspepsia [Not Recovered/Not Resolved]
  - Decreased interest [Unknown]
  - Cough [Not Recovered/Not Resolved]
  - Seizure [Unknown]
  - Weight decreased [Recovering/Resolving]
  - Hypophagia [Recovered/Resolved]
  - Urinary retention [Unknown]
  - Gastrooesophageal reflux disease [Not Recovered/Not Resolved]
  - Asthenia [Unknown]

NARRATIVE: CASE EVENT DATE: 2020
